FAERS Safety Report 11196307 (Version 1)
Quarter: 2015Q2

REPORT INFORMATION
  Report Type: Spontaneous
  Country: IN (occurrence: None)
  Receive Date: 20150615
  Receipt Date: 20150615
  Transmission Date: 20150821
  Serious: Yes (Hospitalization)
  Sender: FDA-Public Use
  Company Number: CC400259522

PATIENT
  Age: 27 Year
  Sex: Female

DRUGS (1)
  1. 1.5% GLYCINE IRRIGATION, USP [Suspect]
     Active Substance: GLYCINE
     Indication: MYOMECTOMY
     Dosage: 33L IRRIGATION

REACTIONS (5)
  - Nausea [None]
  - Mydriasis [None]
  - Blindness transient [None]
  - Toxicity to various agents [None]
  - Vomiting [None]
